FAERS Safety Report 8877738 (Version 1)
Quarter: 2012Q4

REPORT INFORMATION
  Report Type: 
  Country: DK (occurrence: DK)
  Receive Date: 20121024
  Receipt Date: 20121024
  Transmission Date: 20130627
  Serious: Yes (Hospitalization)
  Sender: FDA-Public Use
  Company Number: DK-ASTELLAS-2012EU009163

PATIENT
  Age: 74 Year
  Sex: Male

DRUGS (7)
  1. SINEMET [Suspect]
     Indication: PARKINSON^S DISEASE
     Dosage: UNK DF, Unknown/D
     Route: 048
  2. VESICARE [Suspect]
     Indication: MICTURITION URGENCY
     Dosage: 10 mg, Unknown/D
     Route: 065
  3. VESICARE [Suspect]
     Dosage: 5 mg, Unknown/D
     Route: 065
  4. COMTESS [Concomitant]
     Dosage: UNK
     Route: 065
  5. AMANTADINE HYDROCHLORIDE [Concomitant]
     Dosage: UNK
     Route: 065
  6. IBUPROFEN [Concomitant]
     Dosage: UNK
     Route: 065
  7. SINALFA [Concomitant]
     Dosage: UNK
     Route: 065

REACTIONS (3)
  - Hallucination [Recovering/Resolving]
  - Parkinson^s disease [Unknown]
  - Overdose [Unknown]
